FAERS Safety Report 6654111-0 (Version None)
Quarter: 2010Q1

REPORT INFORMATION
  Report Type: 
  Country: None (occurrence: None)
  Receive Date: 20100326
  Receipt Date: 20100315
  Transmission Date: 20100710
  Serious: Yes (Other)
  Sender: FDA-Public Use
  Company Number: CA-CELGENEUS-028-21880-10031588

PATIENT
  Sex: Male

DRUGS (1)
  1. REVLIMID [Suspect]
     Indication: MULTIPLE MYELOMA
     Route: 048
     Dates: start: 20090701

REACTIONS (6)
  - BACK PAIN [None]
  - BRONCHITIS [None]
  - LEUKOPENIA [None]
  - PRODUCTIVE COUGH [None]
  - SPINAL DISORDER [None]
  - WHEEZING [None]
